FAERS Safety Report 4835821-4 (Version None)
Quarter: 2005Q4

REPORT INFORMATION
  Report Type: 
  Country: None (occurrence: None)
  Receive Date: 20051123
  Receipt Date: 20051114
  Transmission Date: 20060501
  Serious: Yes (Hospitalization)
  Sender: FDA-Public Use
  Company Number: 2005AP05894

PATIENT
  Age: 33 Year
  Sex: Female

DRUGS (6)
  1. SEROQUEL [Suspect]
     Indication: SCHIZOPHRENIA
     Route: 048
  2. TEGRETOL [Concomitant]
     Route: 048
  3. ALEVIATIN [Concomitant]
  4. MYSTAN [Concomitant]
     Route: 048
  5. EXCEGRAN [Concomitant]
     Route: 048
  6. RAVONAL [Concomitant]

REACTIONS (1)
  - THROMBOSIS [None]
